FAERS Safety Report 8519408-8 (Version None)
Quarter: 2012Q3

REPORT INFORMATION
  Report Type: 
  Country: None (occurrence: None)
  Receive Date: 20120718
  Receipt Date: 20120710
  Transmission Date: 20120928
  Serious: Yes (Other)
  Sender: FDA-Public Use
  Company Number: US-TEVA-347361USA

PATIENT
  Sex: Female

DRUGS (2)
  1. AMPYRA [Concomitant]
     Dates: start: 20120601
  2. COPAXONE [Suspect]
     Indication: MULTIPLE SCLEROSIS
     Dates: start: 20060512

REACTIONS (4)
  - MULTIPLE SCLEROSIS RELAPSE [None]
  - HEADACHE [None]
  - ASTHENIA [None]
  - SYNCOPE [None]
